FAERS Safety Report 25123970 (Version 4)
Quarter: 2025Q2

REPORT INFORMATION
  Report Type: Report from Study
  Country: CA (occurrence: CA)
  Receive Date: 20250326
  Receipt Date: 20250626
  Transmission Date: 20250716
  Serious: Yes (Hospitalization)
  Sender: CSL BEHRING
  Company Number: CA-BEH-2025198460

PATIENT
  Age: 56 Year
  Sex: Male
  Weight: 96 kg

DRUGS (20)
  1. HIZENTRA [Suspect]
     Active Substance: HUMAN IMMUNOGLOBULIN G
     Indication: Secondary immunodeficiency
     Dosage: UNK, QW
     Route: 058
     Dates: start: 20250227
  2. HIZENTRA [Suspect]
     Active Substance: HUMAN IMMUNOGLOBULIN G
     Dosage: UNK, QW
     Route: 058
     Dates: start: 20250227
  3. HIZENTRA [Suspect]
     Active Substance: HUMAN IMMUNOGLOBULIN G
     Route: 065
     Dates: start: 20250312
  4. HIZENTRA [Suspect]
     Active Substance: HUMAN IMMUNOGLOBULIN G
     Dosage: UNK UNK, QD FOR 5 DAYS
     Route: 065
     Dates: start: 20250322
  5. HIZENTRA [Suspect]
     Active Substance: HUMAN IMMUNOGLOBULIN G
     Dosage: 11 G, QW
     Route: 058
  6. HIZENTRA [Suspect]
     Active Substance: HUMAN IMMUNOGLOBULIN G
     Dosage: 11 G, QW
     Route: 058
     Dates: start: 20250227
  7. ASPIRIN [Concomitant]
     Active Substance: ASPIRIN
  8. SEVELAMER [Concomitant]
     Active Substance: SEVELAMER
  9. AMLODIPINE [Concomitant]
     Active Substance: AMLODIPINE BESYLATE
  10. PANTOPRAZOLE [Concomitant]
     Active Substance: PANTOPRAZOLE
  11. ATORVASTATIN [Concomitant]
     Active Substance: ATORVASTATIN
  12. HYDROMORPHONE [Concomitant]
     Active Substance: HYDROMORPHONE
  13. ALLOPURINOL [Concomitant]
     Active Substance: ALLOPURINOL
  14. CALCIUM [Concomitant]
     Active Substance: CALCIUM
  15. FUROSEMIDE [Concomitant]
     Active Substance: FUROSEMIDE
  16. ALFACALCIDOL [Concomitant]
     Active Substance: ALFACALCIDOL
  17. VITAMIN B1 [Concomitant]
     Active Substance: THIAMINE HYDROCHLORIDE
  18. FINASTERIDE [Concomitant]
     Active Substance: FINASTERIDE
  19. TAMSULOSIN [Concomitant]
     Active Substance: TAMSULOSIN
  20. BISOPROLOL [Concomitant]
     Active Substance: BISOPROLOL

REACTIONS (22)
  - Pyrexia [Unknown]
  - Chills [Unknown]
  - Unevaluable event [Unknown]
  - Pyrexia [Unknown]
  - Pulmonary oedema [Unknown]
  - Off label use [Unknown]
  - Musculoskeletal chest pain [Recovered/Resolved]
  - Pneumonia [Recovered/Resolved]
  - Injection site pain [Unknown]
  - Injection site erythema [Unknown]
  - Injection site oedema [Unknown]
  - Fatigue [Unknown]
  - Loss of personal independence in daily activities [Unknown]
  - Burning sensation [Unknown]
  - Paraesthesia [Unknown]
  - Injection site swelling [Unknown]
  - Injection site erythema [Unknown]
  - Stress [Unknown]
  - Product dose omission issue [Unknown]
  - Influenza [Unknown]
  - Full blood count decreased [Unknown]
  - Nervousness [Recovered/Resolved]

NARRATIVE: CASE EVENT DATE: 20250101
